FAERS Safety Report 4289808-3 (Version None)
Quarter: 2004Q1

REPORT INFORMATION
  Report Type: 
  Country: None (occurrence: None)
  Receive Date: 20040210
  Receipt Date: 20031126
  Transmission Date: 20041129
  Serious: Yes (Hospitalization)
  Sender: FDA-Public Use
  Company Number: DE-GLAXOSMITHKLINE-D0042624A

PATIENT
  Age: 62 Year
  Sex: Female

DRUGS (4)
  1. ATMADISC [Suspect]
     Indication: ASTHMA
     Route: 055
     Dates: start: 20001005
  2. ESTRIOL [Concomitant]
     Indication: HORMONE LEVEL ABNORMAL
     Route: 065
     Dates: start: 19970505, end: 20031022
  3. FENOFIBRATE [Concomitant]
     Route: 048
     Dates: start: 19990708, end: 20001129
  4. ANGELICA [Concomitant]
     Route: 048
     Dates: start: 20010531, end: 20011121

REACTIONS (3)
  - DYSPHAGIA [None]
  - PEMPHIGUS [None]
  - TONGUE COATED [None]
